FAERS Safety Report 8921368 (Version 1)
Quarter: 2012Q4

REPORT INFORMATION
  Report Type: 
  Country: DE (occurrence: DE)
  Receive Date: 20121121
  Receipt Date: 20121121
  Transmission Date: 20130627
  Serious: Yes (Hospitalization)
  Sender: FDA-Public Use
  Company Number: DE-AMGEN-DEUSP2012074658

PATIENT
  Age: 41 Year
  Sex: Male

DRUGS (2)
  1. ENBREL [Suspect]
     Indication: ANKYLOSING SPONDYLITIS
     Dosage: 25 mg, every 10-12 days
     Dates: start: 20050101
  2. DICLOFENAC [Concomitant]
     Dosage: as needed

REACTIONS (1)
  - Arthritis [Not Recovered/Not Resolved]
